FAERS Safety Report 4539785-2 (Version None)
Quarter: 2004Q4

REPORT INFORMATION
  Report Type: 
  Country: None (occurrence: None)
  Receive Date: 20041228
  Receipt Date: 20041213
  Transmission Date: 20050328
  Serious: Yes (Other)
  Sender: FDA-Public Use
  Company Number: JP-JNJFOC-20041203266

PATIENT
  Age: 52 Year
  Sex: Male

DRUGS (4)
  1. LEVOFLOXACIN [Suspect]
     Dosage: ORAL
  2. LEVOFLOXACIN [Suspect]
     Indication: CHRONIC OBSTRUCTIVE AIRWAYS DISEASE EXACERBATED
     Dosage: INTRAVENOUS
  3. MEDROL [Concomitant]
     Dosage: ORAL
  4. MEDROL [Concomitant]
     Dosage: INTRAVENOUS

REACTIONS (4)
  - JOINT SPRAIN [None]
  - POST-TRAUMATIC OSTEOPOROSIS [None]
  - TENDON RUPTURE [None]
  - TREATMENT NONCOMPLIANCE [None]
